FAERS Safety Report 4779660-1 (Version None)
Quarter: 2005Q3

REPORT INFORMATION
  Report Type: 
  Country: None (occurrence: None)
  Receive Date: 20050914
  Receipt Date: 20050307
  Transmission Date: 20060218
  Serious: Yes (Life-Threatening, Hospitalization)
  Sender: FDA-Public Use
  Company Number: 163-20785-05030169

PATIENT
  Age: 6 Year
  Sex: Female
  Weight: 16.1 kg

DRUGS (3)
  1. THALOMID [Suspect]
     Indication: NEUROBLASTOMA
     Dosage: 150 MG, TWICE A DAY, ORAL
     Route: 048
     Dates: start: 20050106
  2. TEMODAR [Suspect]
     Indication: NEUROBLASTOMA
     Dosage: 100 MG, DAILY, TIMES 5 DAYS, ORAL
     Route: 048
     Dates: start: 20050106, end: 20050110
  3. ANIT-HYPERTENSIVE MEDICATIONS [Concomitant]

REACTIONS (8)
  - CARDIO-RESPIRATORY ARREST [None]
  - DYSPNOEA [None]
  - HAEMOGLOBIN DECREASED [None]
  - HYPERTENSION [None]
  - OXYGEN SATURATION DECREASED [None]
  - PULMONARY OEDEMA [None]
  - PYREXIA [None]
  - THROMBOCYTOPENIA [None]
